FAERS Safety Report 9504608 (Version 2)
Quarter: 2013Q4

REPORT INFORMATION
  Report Type: Spontaneous
  Country: FR (occurrence: FR)
  Receive Date: 20130906
  Receipt Date: 20131015
  Transmission Date: 20140711
  Serious: Yes (Other)
  Sender: FDA-Public Use
  Company Number: FR-MYLANLABS-2013S1019199

PATIENT
  Age: 50 Year
  Sex: Male
  Weight: 79 kg

DRUGS (5)
  1. VERAPAMIL [Suspect]
     Indication: CORONARY ARTERY DISEASE
     Route: 048
     Dates: start: 2006
  2. ODRIK [Suspect]
     Indication: MYOCARDIAL INFARCTION
     Route: 048
     Dates: start: 2006
  3. PLAVIX [Suspect]
     Indication: MYOCARDIAL INFARCTION
     Route: 048
     Dates: start: 2006
  4. OMACOR [Suspect]
     Indication: MYOCARDIAL INFARCTION
     Route: 048
     Dates: start: 2006
  5. INEGY [Suspect]
     Indication: MYOCARDIAL INFARCTION
     Route: 048
     Dates: start: 2006

REACTIONS (1)
  - Tooth fracture [Not Recovered/Not Resolved]
